FAERS Safety Report 5006502-1 (Version None)
Quarter: 2006Q2

REPORT INFORMATION
  Report Type: 
  Country: None (occurrence: None)
  Receive Date: 20060516
  Receipt Date: 20060504
  Transmission Date: 20061013
  Serious: Yes (Death)
  Sender: FDA-Public Use
  Company Number: FI200605001244

PATIENT
  Age: 51 Year
  Sex: Male

DRUGS (4)
  1. ZYPREXA [Suspect]
     Indication: BIPOLAR DISORDER
     Dosage: 15 MG ORAL
     Route: 048
     Dates: start: 20030710
  2. CARBAMAZEPINE [Concomitant]
  3. BENZODIAZEPINE DERIVATIVES [Concomitant]
  4. MOCLOBEMIDE [Concomitant]

REACTIONS (1)
  - COMPLETED SUICIDE [None]
